FAERS Safety Report 4782484-2 (Version None)
Quarter: 2005Q3

REPORT INFORMATION
  Report Type: 
  Country: None (occurrence: None)
  Receive Date: 20050929
  Receipt Date: 20041217
  Transmission Date: 20060218
  Serious: No
  Sender: FDA-Public Use
  Company Number: 393030

PATIENT
  Age: 72 Year
  Sex: Male

DRUGS (6)
  1. COREG [Suspect]
     Dosage: 25MG TWICE PER DAY
     Route: 048
     Dates: start: 20040701
  2. ZOCOR [Concomitant]
  3. LISINOPRIL [Concomitant]
  4. ASPIRIN [Concomitant]
  5. PLAVIX [Concomitant]
  6. VIAGRA [Concomitant]

REACTIONS (1)
  - RALES [None]
